FAERS Safety Report 10432289 (Version 3)
Quarter: 2015Q3

REPORT INFORMATION
  Report Type: Spontaneous
  Country: US (occurrence: None)
  Receive Date: 20140815
  Receipt Date: 20150629
  Transmission Date: 20151125
  Serious: No
  Sender: FDA-Public Use
  Company Number: A-NJ2014-102618

PATIENT
  Age: 66 Year
  Sex: Female

DRUGS (11)
  1. OPSUMIT [Suspect]
     Active Substance: MACITENTAN
     Indication: PULMONARY ARTERIAL HYPERTENSION
     Route: 048
     Dates: start: 20140215
  2. SPIRONOLACTONE (SPIRONOLACTONE) [Concomitant]
     Active Substance: SPIRONOLACTONE
  3. METOPROLOL (METOPROLOL FUMARATE) [Concomitant]
  4. ALLOPURINOL (ALLOPURINOL SODIUM) [Concomitant]
  5. LIPITOR [Concomitant]
     Active Substance: ATORVASTATIN CALCIUM
  6. LASIX [Concomitant]
     Active Substance: FUROSEMIDE
  7. REVATIO (SILDENAFIL CITRATE) [Concomitant]
  8. AMITRIPTYLINE (AMITRIPTYLINE PAMOATE) [Concomitant]
  9. THYROXINE (LEVOTHYROXINE SODIUM) [Concomitant]
     Active Substance: LEVOTHYROXINE
  10. DILTIAZEM (DILTIAZEM HYDROCHLORIDE) [Concomitant]
  11. XARELTO [Concomitant]
     Active Substance: RIVAROXABAN

REACTIONS (3)
  - Sinusitis [None]
  - Nasopharyngitis [None]
  - Bronchitis [None]

NARRATIVE: CASE EVENT DATE: 201404
